FAERS Safety Report 5647419-9 (Version None)
Quarter: 2008Q1

REPORT INFORMATION
  Report Type: 
  Country: None (occurrence: None)
  Receive Date: 20080303
  Receipt Date: 20080227
  Transmission Date: 20080703
  Serious: Yes (Other)
  Sender: FDA-Public Use
  Company Number: US-ASTRAZENECA-2008UW02328

PATIENT
  Age: 14386 Day
  Sex: Female
  Weight: 86.8 kg

DRUGS (3)
  1. ZOLADEX [Suspect]
     Indication: BREAST CANCER
     Route: 058
     Dates: start: 20080103
  2. ARIMIDEX [Concomitant]
     Indication: BREAST CANCER
     Route: 048
  3. EFFEXOR [Concomitant]
     Indication: HOT FLUSH

REACTIONS (1)
  - MEDICATION ERROR [None]
